FAERS Safety Report 9932605 (Version 1)
Quarter: 2014Q1

REPORT INFORMATION
  Report Type: Spontaneous
  Country: ES (occurrence: ES)
  Receive Date: 20140228
  Receipt Date: 20140228
  Transmission Date: 20141002
  Serious: Yes (Other)
  Sender: FDA-Public Use
  Company Number: PHHY2014ES020709

PATIENT
  Sex: Male
  Weight: 2.46 kg

DRUGS (3)
  1. ACENOCOUMAROL [Suspect]
     Dosage: UNK
     Route: 064
  2. ENOXAPARIN [Suspect]
     Route: 064
  3. DALTEPARIN [Concomitant]
     Route: 064

REACTIONS (2)
  - Low birth weight baby [Unknown]
  - Foetal exposure during pregnancy [Unknown]
